FAERS Safety Report 8267500-8 (Version None)
Quarter: 2012Q2

REPORT INFORMATION
  Report Type: 
  Country: None (occurrence: None)
  Receive Date: 20120409
  Receipt Date: 20120402
  Transmission Date: 20120825
  Serious: Yes (Other)
  Sender: FDA-Public Use
  Company Number: JP-JNJFOC-20120104826

PATIENT
  Sex: Female
  Weight: 54 kg

DRUGS (15)
  1. ISONIAZID [Concomitant]
     Indication: PROPHYLAXIS
     Route: 048
  2. PYRIDOXAL PHOSPHATE [Concomitant]
     Indication: PROPHYLAXIS
     Route: 048
  3. SIMPONI [Suspect]
     Route: 058
     Dates: start: 20111129, end: 20111129
  4. ALENDRONATE SODIUM [Concomitant]
     Route: 048
  5. PREDNISOLONE [Concomitant]
     Indication: RHEUMATOID ARTHRITIS
     Route: 048
     Dates: end: 20111129
  6. URSODIOL [Concomitant]
     Route: 048
  7. SIMPONI [Suspect]
     Route: 058
     Dates: start: 20120112
  8. FOLIC ACID [Concomitant]
     Indication: PROPHYLAXIS
     Route: 048
  9. MISOPROSTOL [Concomitant]
     Route: 048
  10. BONOTEO [Concomitant]
     Indication: PROPHYLAXIS
     Route: 048
  11. LANSOPRAZOLE [Concomitant]
     Route: 048
  12. LOXOPROFEN [Concomitant]
     Indication: RHEUMATOID ARTHRITIS
     Route: 048
  13. METHOTREXATE [Suspect]
     Indication: PRODUCT USED FOR UNKNOWN INDICATION
     Route: 048
     Dates: start: 20111222, end: 20111223
  14. PREDNISOLONE [Concomitant]
     Route: 048
     Dates: start: 20111130
  15. SIMPONI [Suspect]
     Indication: RHEUMATOID ARTHRITIS
     Route: 058
     Dates: start: 20111028, end: 20111028

REACTIONS (2)
  - HEPATIC FUNCTION ABNORMAL [None]
  - ERYSIPELAS [None]
